FAERS Safety Report 13190446 (Version 9)
Quarter: 2017Q3

REPORT INFORMATION
  Report Type: Report from Study
  Country: NL (occurrence: NL)
  Receive Date: 20170206
  Receipt Date: 20170818
  Transmission Date: 20171127
  Serious: Yes (Hospitalization, Other)
  Sender: FDA-Public Use
  Company Number: NL-JNJFOC-20170201346

PATIENT
  Age: 65 Year
  Sex: Female
  Weight: 81 kg

DRUGS (2)
  1. ACITRETIN. [Suspect]
     Active Substance: ACITRETIN
     Indication: PRODUCT USED FOR UNKNOWN INDICATION
     Route: 065
  2. USTEKINUMAB [Suspect]
     Active Substance: USTEKINUMAB
     Indication: PSORIASIS
     Route: 058
     Dates: start: 2009

REACTIONS (5)
  - Coronary artery disease [Recovered/Resolved]
  - Chronic kidney disease [Not Recovered/Not Resolved]
  - Adenocarcinoma of colon [Recovered/Resolved]
  - Wound dehiscence [Recovered/Resolved]
  - Anastomotic leak [Recovered/Resolved]

NARRATIVE: CASE EVENT DATE: 20170119
